FAERS Safety Report 7404114-3 (Version None)
Quarter: 2011Q2

REPORT INFORMATION
  Report Type: 
  Country: None (occurrence: None)
  Receive Date: 20110408
  Receipt Date: 20110325
  Transmission Date: 20111010
  Serious: Yes (Hospitalization)
  Sender: FDA-Public Use
  Company Number: CA-JNJFOC-20110311949

PATIENT
  Weight: 75 kg

DRUGS (1)
  1. REMICADE [Suspect]
     Indication: PRODUCT USED FOR UNKNOWN INDICATION
     Dosage: AT 7 WEEK INTERVAL FOR 52 WEEKS
     Route: 042

REACTIONS (3)
  - CONSTIPATION [None]
  - DIARRHOEA [None]
  - CONDITION AGGRAVATED [None]
